FAERS Safety Report 8943280 (Version 2)
Quarter: 2012Q4

REPORT INFORMATION
  Report Type: Spontaneous
  Country: SE (occurrence: None)
  Receive Date: 20121123
  Receipt Date: 20121130
  Transmission Date: 20130627
  Serious: Yes (Other)
  Sender: FDA-Public Use
  Company Number: DSA_60959_2012

PATIENT

DRUGS (2)
  1. BUPROPION HYDROCHLORIDE [Suspect]
     Indication: PRODUCT USED FOR UNKNOWN INDICATION
     Dosage: (DF)
     Dates: start: 201210
  2. VENLAFAXINE [Concomitant]

REACTIONS (5)
  - Hypersensitivity [None]
  - Malaise [None]
  - Asthenia [None]
  - Wound haemorrhage [None]
  - Pruritus [None]
